FAERS Safety Report 8340968-4 (Version None)
Quarter: 2012Q2

REPORT INFORMATION
  Report Type: 
  Country: None (occurrence: None)
  Receive Date: 20120507
  Receipt Date: 20060328
  Transmission Date: 20120825
  Serious: Yes (Hospitalization)
  Sender: FDA-Public Use
  Company Number: FR-ROCHE-GNE223501

PATIENT
  Sex: Female

DRUGS (3)
  1. CYCLOPHOSPHAMIDE [Suspect]
     Indication: MANTLE CELL LYMPHOMA
     Dosage: 500 MG/KG, UNK
     Route: 065
     Dates: start: 20051006, end: 20060220
  2. FLUDARABINE PHOSPHATE [Suspect]
     Indication: MANTLE CELL LYMPHOMA
     Dosage: 60 MG/KG, UNK
     Route: 065
     Dates: start: 20051006, end: 20060220
  3. MABTHERA [Suspect]
     Indication: MANTLE CELL LYMPHOMA
     Dosage: 700 MG/KG, UNK
     Route: 065
     Dates: start: 20051006, end: 20060220

REACTIONS (3)
  - BONE MARROW FAILURE [None]
  - HAEMATURIA [None]
  - ESCHERICHIA SEPSIS [None]
